FAERS Safety Report 21579713 (Version 1)
Quarter: 2022Q4

REPORT INFORMATION
  Report Type: Spontaneous
  Country: US (occurrence: None)
  Receive Date: 20221110
  Receipt Date: 20221110
  Transmission Date: 20230113
  Serious: Yes (Disabling)
  Sender: FDA-Public Use
  Company Number: None

PATIENT
  Age: 59 Year
  Sex: Male
  Weight: 92.25 kg

DRUGS (4)
  1. ACETAMINOPHEN\HYDROCODONE [Suspect]
     Active Substance: ACETAMINOPHEN\HYDROCODONE
     Indication: Back pain
     Dosage: OTHER QUANTITY : 2 TABLET(S)?FREQUENCY : EVERY 6 HOURS?
     Route: 048
  2. NORCO GENERIC [Concomitant]
  3. 30 MG MORPHINE EXTEDED RELEASE [Concomitant]
  4. ONE A DAY VITAMIN MULTI [Concomitant]

REACTIONS (3)
  - Tinnitus [None]
  - Drug ineffective [None]
  - Product substitution issue [None]

NARRATIVE: CASE EVENT DATE: 20220727
